FAERS Safety Report 14647507 (Version 2)
Quarter: 2018Q2

REPORT INFORMATION
  Report Type: Report from Study
  Country: US (occurrence: US)
  Receive Date: 20180316
  Receipt Date: 20180412
  Transmission Date: 20180711
  Serious: Yes (Other)
  Sender: FDA-Public Use
  Company Number: US-ASTELLAS-2018US011426

PATIENT
  Sex: Female
  Weight: 54 kg

DRUGS (4)
  1. AMLODIPINE [Concomitant]
     Active Substance: AMLODIPINE BESYLATE
     Indication: PRODUCT USED FOR UNKNOWN INDICATION
     Dosage: UNK UNK, UNKNOWN FREQ.
     Route: 065
  2. ERLOTINIB [Suspect]
     Active Substance: ERLOTINIB
     Indication: LUNG CARCINOMA CELL TYPE UNSPECIFIED STAGE IV
     Route: 048
     Dates: start: 2016
  3. ERLOTINIB [Suspect]
     Active Substance: ERLOTINIB
     Dosage: 25 MG, AT BEDTIME (TAKES 1/2 OF 50 MG TABLET (25MG) TWICE AT NIGHT)
     Route: 048
     Dates: start: 2016
  4. ERLOTINIB [Suspect]
     Active Substance: ERLOTINIB
     Route: 048
     Dates: start: 2016, end: 2016

REACTIONS (14)
  - Confusional state [Not Recovered/Not Resolved]
  - Emotional disorder [Unknown]
  - Acne [Recovered/Resolved with Sequelae]
  - Diarrhoea [Recovered/Resolved]
  - Eye disorder [Not Recovered/Not Resolved]
  - Vision blurred [Unknown]
  - Fear [Not Recovered/Not Resolved]
  - Crying [Not Recovered/Not Resolved]
  - Dry eye [Not Recovered/Not Resolved]
  - Panic attack [Unknown]
  - Deafness unilateral [Not Recovered/Not Resolved]
  - Emotional distress [Not Recovered/Not Resolved]
  - Head discomfort [Unknown]
  - Rash [Recovered/Resolved with Sequelae]

NARRATIVE: CASE EVENT DATE: 2016
